FAERS Safety Report 16412226 (Version 1)
Quarter: 2019Q2

REPORT INFORMATION
  Report Type: Spontaneous
  Country: ES (occurrence: ES)
  Receive Date: 20190610
  Receipt Date: 20190610
  Transmission Date: 20190711
  Serious: Yes (Hospitalization, Other)
  Sender: FDA-Public Use
  Company Number: PHHY2019ES120694

PATIENT
  Age: 77 Year
  Sex: Female

DRUGS (4)
  1. CALCIUM CARBONATE. [Suspect]
     Active Substance: CALCIUM CARBONATE
     Indication: HYPOCALCAEMIA
     Dosage: 20 G, Q24H
     Route: 065
  2. CALCITRIOL. [Suspect]
     Active Substance: CALCITRIOL
     Indication: HYPERPARATHYROIDISM PRIMARY
     Dosage: 1600UI, Q24H
     Route: 065
  3. CALCITRIOL. [Suspect]
     Active Substance: CALCITRIOL
     Indication: HYPERPARATHYROIDISM
  4. CALCIUM CARBONATE. [Suspect]
     Active Substance: CALCIUM CARBONATE
     Indication: HYPERPARATHYROIDISM PRIMARY
     Dosage: 2 G, Q24H
     Route: 065

REACTIONS (2)
  - Hypercalcaemia [Recovering/Resolving]
  - Milk-alkali syndrome [Recovering/Resolving]
